FAERS Safety Report 5075909-9 (Version None)
Quarter: 2006Q3

REPORT INFORMATION
  Report Type: 
  Country: None (occurrence: None)
  Receive Date: 20060807
  Receipt Date: 20060807
  Transmission Date: 20061208
  Serious: Yes (Hospitalization)
  Sender: FDA-Public Use
  Company Number: None

PATIENT
  Age: 2 Month
  Sex: Female
  Weight: 2.9 kg

DRUGS (10)
  1. AZITHROMYCIN [Suspect]
     Indication: PERTUSSIS
     Dosage: 10 MG/KG PO
     Route: 048
  2. CAFFEINE [Concomitant]
  3. POLY-VI-SOL [Concomitant]
  4. FER-IN-SOL [Concomitant]
  5. BETHANECHOL [Concomitant]
  6. PREVACID [Concomitant]
  7. HIB [Concomitant]
  8. POLIO [Concomitant]
  9. HEPB PCV VACCINES [Concomitant]
  10. . [Concomitant]

REACTIONS (1)
  - PYLORIC STENOSIS [None]
